FAERS Safety Report 4447857-6 (Version None)
Quarter: 2004Q3

REPORT INFORMATION
  Report Type: 
  Country: None (occurrence: None)
  Receive Date: 20040910
  Receipt Date: 20040803
  Transmission Date: 20050211
  Serious: Yes (Hospitalization)
  Sender: FDA-Public Use
  Company Number: 2004SE04442

PATIENT
  Age: 82 Year
  Sex: Male

DRUGS (10)
  1. ROSUVASTATIN [Suspect]
     Indication: CARDIAC FAILURE
     Dates: start: 20040216, end: 20040701
  2. ROSUVASTATIN [Suspect]
     Indication: CARDIAC FAILURE
     Dates: start: 20040710
  3. MOLSIDOMINE [Concomitant]
  4. QUERTO [Concomitant]
  5. UNAT [Concomitant]
  6. DIGITOXIN [Concomitant]
  7. RAMIPRIL [Concomitant]
  8. GLUCOBAY [Concomitant]
  9. DELIX [Concomitant]
  10. ISOKET [Concomitant]

REACTIONS (1)
  - CARDIAC FAILURE [None]
